FAERS Safety Report 8971360 (Version 2)
Quarter: 2013Q1

REPORT INFORMATION
  Report Type: Spontaneous
  Country: US (occurrence: US)
  Receive Date: 20121218
  Receipt Date: 20130116
  Transmission Date: 20140127
  Serious: Yes (Death)
  Sender: FDA-Public Use
  Company Number: US-GENZYME-FABR-1002909

PATIENT
  Age: 55 Year
  Sex: Female
  Weight: 112 kg

DRUGS (1)
  1. FABRAZYME [Suspect]
     Indication: FABRY^S DISEASE
     Dosage: 120 MG, QOW
     Route: 042
     Dates: start: 20050522, end: 20121210

REACTIONS (1)
  - Death [Fatal]
